FAERS Safety Report 5679832-8 (Version None)
Quarter: 2008Q1

REPORT INFORMATION
  Report Type: 
  Country: None (occurrence: None)
  Receive Date: 20080325
  Receipt Date: 20080319
  Transmission Date: 20080703
  Serious: Yes (Disabling)
  Sender: FDA-Public Use
  Company Number: GB-ALLERGAN-0803352US

PATIENT
  Sex: Male

DRUGS (3)
  1. DYSPORT [Suspect]
     Indication: BLEPHAROSPASM
     Dosage: 320 UNITS, UNK
     Route: 030
     Dates: start: 20070501
  2. DYSPORT [Suspect]
     Dates: start: 20070912
  3. DYSPORT [Suspect]
     Dates: start: 20061218

REACTIONS (1)
  - DRUG INEFFECTIVE [None]
